FAERS Safety Report 10392009 (Version 2)
Quarter: 2014Q3

REPORT INFORMATION
  Report Type: Spontaneous
  Country: JP (occurrence: JP)
  Receive Date: 20140819
  Receipt Date: 20140819
  Transmission Date: 20150326
  Serious: Yes (Hospitalization, Other)
  Sender: FDA-Public Use
  Company Number: PHHY2014JP075102

PATIENT
  Age: 63 Year
  Sex: Female
  Weight: 52 kg

DRUGS (16)
  1. AROMASIN [Suspect]
     Active Substance: EXEMESTANE
     Dosage: UNK UKN, UNK
     Dates: end: 20120411
  2. FASLODEX [Concomitant]
     Active Substance: FULVESTRANT
     Dosage: UNK UKN, UNK
     Dates: start: 20121128, end: 20130417
  3. ONEALFA [Concomitant]
     Active Substance: ALFACALCIDOL
     Dosage: UNK UKN, UNK
     Dates: start: 20140502
  4. ZOMETA [Suspect]
     Active Substance: ZOLEDRONIC ACID
     Dosage: 4 MG, UNK
     Route: 041
     Dates: start: 20110131, end: 20120411
  5. HYSRON H [Concomitant]
     Dosage: UNK UKN, UNK
     Dates: start: 20120420, end: 20120820
  6. FARESTON [Concomitant]
     Active Substance: TOREMIFENE CITRATE
     Dosage: UNK UKN, UNK
     Dates: start: 20130417, end: 20130805
  7. ARIMIDEX [Suspect]
     Active Substance: ANASTROZOLE
     Dosage: UNK UKN, UNK
     Route: 048
  8. EXEMESTANE. [Concomitant]
     Active Substance: EXEMESTANE
     Dosage: UNK UKN, UNK
     Dates: start: 20140606
  9. CALCIUM LACTATE [Concomitant]
     Active Substance: CALCIUM LACTATE
     Dosage: UNK UKN, UNK
     Dates: start: 20140502
  10. NAIXAN [Concomitant]
     Active Substance: NAPROXEN SODIUM
     Indication: TUMOUR ASSOCIATED FEVER
     Dosage: UNK UKN, UNK
  11. RANMARK [Concomitant]
     Active Substance: DENOSUMAB
     Dosage: UNK UKN, UNK
     Dates: start: 20140117
  12. FEMARA [Concomitant]
     Active Substance: LETROZOLE
     Dosage: UNK UKN, UNK
     Dates: start: 20120820, end: 20121128
  13. AFINITOR [Suspect]
     Active Substance: EVEROLIMUS
     Indication: BREAST CANCER
     Dosage: 10 MG, DAILY
     Route: 048
     Dates: end: 20140612
  14. FEMARA [Concomitant]
     Active Substance: LETROZOLE
     Dosage: UNK UKN, UNK
     Dates: start: 20130805, end: 20140606
  15. FERROMIA [Concomitant]
     Active Substance: FERROUS CITRATE
     Indication: IRON DEFICIENCY ANAEMIA
     Dosage: UNK UKN, UNK
  16. ATORVASTATIN [Concomitant]
     Active Substance: ATORVASTATIN
     Dosage: UNK UKN, UNK

REACTIONS (8)
  - Pain in jaw [Unknown]
  - Osteomyelitis [Unknown]
  - Lip swelling [Unknown]
  - Gingivitis [Unknown]
  - Metastases to bone [Unknown]
  - Paraesthesia [Not Recovered/Not Resolved]
  - Aphthous stomatitis [Recovering/Resolving]
  - Hypocalcaemia [Unknown]

NARRATIVE: CASE EVENT DATE: 20110803
